FAERS Safety Report 7851591-X (Version None)
Quarter: 2011Q4

REPORT INFORMATION
  Report Type: 
  Country: None (occurrence: None)
  Receive Date: 20111026
  Receipt Date: 20111019
  Transmission Date: 20120403
  Serious: Yes (Hospitalization, Other)
  Sender: FDA-Public Use
  Company Number: US-ABBOTT-11P-163-0867223-00

PATIENT
  Sex: Female
  Weight: 67.192 kg

DRUGS (9)
  1. HUMIRA [Suspect]
     Dosage: STARTING DOSE
     Dates: start: 20110901, end: 20110901
  2. CALCIUM CARBONATE [Concomitant]
     Indication: PRODUCT USED FOR UNKNOWN INDICATION
  3. HUMIRA [Suspect]
     Indication: COLITIS ULCERATIVE
     Dates: start: 20050101, end: 20060101
  4. FENTANYL-100 [Concomitant]
     Indication: PRODUCT USED FOR UNKNOWN INDICATION
     Route: 062
  5. IRON [Concomitant]
     Indication: PRODUCT USED FOR UNKNOWN INDICATION
  6. HUMIRA [Suspect]
     Dosage: SECOND DOSE.
     Dates: start: 20110901, end: 20110901
  7. DILAUDID [Concomitant]
     Indication: PAIN
  8. VITAMIN D [Concomitant]
     Indication: PRODUCT USED FOR UNKNOWN INDICATION
  9. HUMIRA [Suspect]
     Indication: RHEUMATOID ARTHRITIS
     Dates: start: 20110901

REACTIONS (6)
  - ILEECTOMY [None]
  - HYPOPHAGIA [None]
  - ANAEMIA [None]
  - DRUG INEFFECTIVE [None]
  - OFF LABEL USE [None]
  - DIARRHOEA HAEMORRHAGIC [None]
